FAERS Safety Report 8063049-6 (Version None)
Quarter: 2012Q1

REPORT INFORMATION
  Report Type: 
  Country: None (occurrence: None)
  Receive Date: 20120123
  Receipt Date: 20120113
  Transmission Date: 20120608
  Serious: Yes (Hospitalization, Other)
  Sender: FDA-Public Use
  Company Number: DE-ROCHE-1023449

PATIENT
  Sex: Female
  Weight: 54 kg

DRUGS (6)
  1. AVASTIN [Suspect]
     Indication: BREAST CANCER METASTATIC
     Route: 042
     Dates: start: 20110908, end: 20111007
  2. ZANTAC [Concomitant]
  3. KEVATRIL [Concomitant]
  4. PACLITAXEL [Concomitant]
     Indication: BREAST CANCER METASTATIC
     Route: 042
     Dates: start: 20110908
  5. DEXAMETHASONE TAB [Concomitant]
  6. FENISTIL [Concomitant]

REACTIONS (3)
  - BILIARY FISTULA [None]
  - METASTASES TO LIVER [None]
  - PERFORATION BILE DUCT [None]
